FAERS Safety Report 16085534 (Version 1)
Quarter: 2019Q2

REPORT INFORMATION
  Report Type: Spontaneous
  Country: US (occurrence: US)
  Receive Date: 20190318
  Receipt Date: 20190318
  Transmission Date: 20190711
  Serious: Yes (Other)
  Sender: FDA-Public Use
  Company Number: None

PATIENT
  Age: 49 Year
  Sex: Female
  Weight: 157.5 kg

DRUGS (1)
  1. AIMOVIG [Suspect]
     Active Substance: ERENUMAB-AOOE
     Indication: MIGRAINE
     Dosage: ?          QUANTITY:1 INJECTION(S);OTHER FREQUENCY:ONCE A MONTH;?
     Route: 058
     Dates: start: 20190302, end: 20190318

REACTIONS (6)
  - Chest discomfort [None]
  - Peripheral coldness [None]
  - Chills [None]
  - Palpitations [None]
  - Insomnia [None]
  - Fungal infection [None]

NARRATIVE: CASE EVENT DATE: 20190309
